FAERS Safety Report 4678384-9 (Version None)
Quarter: 2005Q2

REPORT INFORMATION
  Report Type: 
  Country: None (occurrence: None)
  Receive Date: 20050531
  Receipt Date: 20050531
  Transmission Date: 20051028
  Serious: No
  Sender: FDA-Public Use
  Company Number: None

PATIENT
  Age: 47 Year
  Sex: Male
  Weight: 72.5755 kg

DRUGS (1)
  1. CIALIS [Suspect]
     Indication: ERECTILE DYSFUNCTION
     Dosage: ONE WEEKLY ORAL
     Route: 048
     Dates: start: 20040601, end: 20050514

REACTIONS (4)
  - BLINDNESS TRANSIENT [None]
  - BLINDNESS UNILATERAL [None]
  - EYE IRRITATION [None]
  - EYE PAIN [None]
